FAERS Safety Report 23419956 (Version 1)
Quarter: 2024Q1

REPORT INFORMATION
  Report Type: Spontaneous
  Country: US (occurrence: US)
  Receive Date: 20240119
  Receipt Date: 20240119
  Transmission Date: 20240410
  Serious: Yes (Death, Other)
  Sender: FDA-Public Use
  Company Number: US-BRISTOL-MYERS SQUIBB COMPANY-2024-006725

PATIENT
  Age: 70 Year
  Sex: Female
  Weight: 68.7 kg

DRUGS (1)
  1. BREYANZI [Suspect]
     Active Substance: LISOCABTAGENE MARALEUCEL
     Indication: Diffuse large B-cell lymphoma
     Dates: start: 20230215

REACTIONS (15)
  - Fatigue [Recovering/Resolving]
  - Hypotension [Recovered/Resolved]
  - Nausea [Recovered/Resolved]
  - Tachycardia [Recovered/Resolved]
  - Cytokine release syndrome [Recovered/Resolved]
  - Diarrhoea [Recovered/Resolved]
  - Aphasia [Recovered/Resolved]
  - Decreased appetite [Recovered/Resolved]
  - Hallucination, visual [Recovered/Resolved]
  - Malaise [Recovered/Resolved]
  - Myalgia [Recovered/Resolved]
  - Tremor [Recovering/Resolving]
  - Dysphagia [Recovered/Resolved]
  - Infection [Fatal]
  - Immune effector cell-associated neurotoxicity syndrome [Recovered/Resolved]

NARRATIVE: CASE EVENT DATE: 20230101
